FAERS Safety Report 24196038 (Version 1)
Quarter: 2024Q3

REPORT INFORMATION
  Report Type: Report from Study
  Country: US (occurrence: US)
  Receive Date: 20240809
  Receipt Date: 20240809
  Transmission Date: 20241017
  Serious: Yes (Other)
  Sender: ABBVIE
  Company Number: US-ABBVIE-5870818

PATIENT
  Age: 68 Year
  Sex: Female

DRUGS (1)
  1. RINVOQ [Suspect]
     Active Substance: UPADACITINIB
     Indication: Dermatitis atopic
     Route: 048
     Dates: start: 20231227

REACTIONS (8)
  - Intestinal obstruction [Unknown]
  - Dyspnoea [Not Recovered/Not Resolved]
  - Lung opacity [Unknown]
  - Pneumonia [Unknown]
  - Generalised oedema [Unknown]
  - Constipation [Unknown]
  - Weight increased [Unknown]
  - Diarrhoea [Unknown]

NARRATIVE: CASE EVENT DATE: 20240501
